FAERS Safety Report 17521816 (Version 1)
Quarter: 2020Q1

REPORT INFORMATION
  Report Type: Spontaneous
  Country: US (occurrence: US)
  Receive Date: 20200310
  Receipt Date: 20200310
  Transmission Date: 20200409
  Serious: Yes (Other)
  Sender: FDA-Public Use
  Company Number: US-PFIZER INC-2017123419

PATIENT
  Age: 62 Year
  Sex: Male
  Weight: 106.12 kg

DRUGS (3)
  1. DILANTIN [Suspect]
     Active Substance: PHENYTOIN
     Indication: GENERALISED TONIC-CLONIC SEIZURE
     Dosage: 200 MG, ALTERNATE DAY (THREE 100 MG CAPSULES ALTERNATING WITH 2 PILLS EVERY OTHER DAY)
     Route: 048
  2. DILANTIN [Suspect]
     Active Substance: PHENYTOIN
     Indication: SEIZURE
     Dosage: 300 MG, ALTERNATE DAY (THREE 100 MG CAPSULES ALTERNATING WITH 2 PILLS EVERY OTHER DAY)
     Route: 048
  3. TEGRETOL [Concomitant]
     Active Substance: CARBAMAZEPINE
     Indication: GENERALISED TONIC-CLONIC SEIZURE
     Dosage: UNK

REACTIONS (8)
  - Depression [Recovering/Resolving]
  - Peripheral vascular disorder [Unknown]
  - Weight increased [Unknown]
  - Snoring [Unknown]
  - Hypothyroidism [Recovering/Resolving]
  - Asthma [Unknown]
  - Dementia [Unknown]
  - Sleep apnoea syndrome [Unknown]

NARRATIVE: CASE EVENT DATE: 2019
